FAERS Safety Report 9043373 (Version 1)
Quarter: 2013Q1

REPORT INFORMATION
  Report Type: Report from Study
  Country: US (occurrence: US)
  Receive Date: 20130129
  Receipt Date: 20130129
  Transmission Date: 20140127
  Serious: No
  Sender: FDA-Public Use
  Company Number: US-ABBOTT-12P-163-0912720-00

PATIENT
  Age: 60 Year
  Sex: Female
  Weight: 62.65 kg

DRUGS (4)
  1. HUMIRA 40 MG/0.8 ML PEN [Suspect]
     Indication: PSORIASIS
     Dates: start: 20120224
  2. NEUROTIN [Concomitant]
     Indication: FIBROMYALGIA
  3. PREVACID [Concomitant]
     Indication: GASTROOESOPHAGEAL REFLUX DISEASE
  4. REGLAN [Concomitant]
     Indication: VOMITING

REACTIONS (1)
  - Psoriasis [Not Recovered/Not Resolved]
